FAERS Safety Report 6546428-5 (Version None)
Quarter: 2010Q1

REPORT INFORMATION
  Report Type: 
  Country: None (occurrence: None)
  Receive Date: 20100122
  Receipt Date: 20100111
  Transmission Date: 20100710
  Serious: Yes (Hospitalization)
  Sender: FDA-Public Use
  Company Number: PHHY2010FR01504

PATIENT
  Sex: Female

DRUGS (6)
  1. LEPONEX [Suspect]
     Dosage: 25, 2 DF DAILY
     Dates: start: 20091101, end: 20091210
  2. EFFEXOR [Concomitant]
     Dosage: 75 MG DAILY
  3. EFFEXOR [Concomitant]
     Dosage: 37.5 MG
     Dates: start: 20091101
  4. MODOPAR [Concomitant]
     Dosage: 125, 2 DF DAILY
  5. IMOVANE [Concomitant]
     Dosage: 12 DAILY
  6. RIVOTRIL [Concomitant]
     Dosage: 5 DROPS TO TAKE ON REQUEST

REACTIONS (7)
  - BLOOD BILIRUBIN INCREASED [None]
  - C-REACTIVE PROTEIN INCREASED [None]
  - CELL DEATH [None]
  - CHOLESTASIS [None]
  - GAMMA-GLUTAMYLTRANSFERASE INCREASED [None]
  - HEPATIC ENZYME INCREASED [None]
  - PYREXIA [None]
